FAERS Safety Report 9644944 (Version 1)
Quarter: 2013Q4

REPORT INFORMATION
  Report Type: Spontaneous
  Country: US (occurrence: None)
  Receive Date: 20131023
  Receipt Date: 20131023
  Transmission Date: 20140711
  Serious: Yes (Life-Threatening, Hospitalization, Disabling)
  Sender: FDA-Public Use
  Company Number: None

PATIENT
  Age: 68 Year
  Sex: Male
  Weight: 86.18 kg

DRUGS (1)
  1. RITALIN [Suspect]
     Dosage: TWO PILLS ONCE DAILY
     Route: 048
     Dates: start: 20130820, end: 20131027

REACTIONS (9)
  - Atrial fibrillation [None]
  - Overdose [None]
  - Post procedural complication [None]
  - Delusion [None]
  - Psychotic disorder [None]
  - Alcohol withdrawal syndrome [None]
  - Abnormal behaviour [None]
  - Confusional state [None]
  - Drug administration error [None]
